FAERS Safety Report 12682118 (Version 3)
Quarter: 2016Q3

REPORT INFORMATION
  Report Type: Report from Study
  Country: TR (occurrence: TR)
  Receive Date: 20160824
  Receipt Date: 20160914
  Transmission Date: 20161109
  Serious: Yes (Death, Other)
  Sender: FDA-Public Use
  Company Number: TR-GILEAD-2016-0229595

PATIENT
  Age: 60 Year
  Sex: Female

DRUGS (5)
  1. FUROSEMID                          /00032601/ [Concomitant]
     Active Substance: FUROSEMIDE
  2. RIFAXIMINE [Concomitant]
  3. LOLA [Concomitant]
  4. LEDIPASVIR/SOFOSBUVIR [Suspect]
     Active Substance: LEDIPASVIR\SOFOSBUVIR
     Indication: CHRONIC HEPATITIS C
     Dosage: UNK
     Route: 048
     Dates: start: 20150813, end: 20160128
  5. SPIRONOLACTON [Concomitant]
     Active Substance: SPIRONOLACTONE

REACTIONS (2)
  - Liver transplant [Unknown]
  - Septic shock [Fatal]

NARRATIVE: CASE EVENT DATE: 201603
